FAERS Safety Report 20189204 (Version 1)
Quarter: 2021Q4

REPORT INFORMATION
  Report Type: Spontaneous
  Country: US (occurrence: US)
  Receive Date: 20211215
  Receipt Date: 20211215
  Transmission Date: 20220303
  Serious: Yes (Other)
  Sender: FDA-Public Use
  Company Number: US-SA-SAC20211209001174

PATIENT
  Age: 87 Year
  Sex: Male

DRUGS (1)
  1. ZANTAC [Suspect]
     Active Substance: RANITIDINE HYDROCHLORIDE
     Indication: Dyspepsia
     Dosage: QD
     Dates: start: 1985, end: 2012

REACTIONS (5)
  - Prostate cancer [Unknown]
  - Skin cancer [Unknown]
  - Myelofibrosis [Unknown]
  - Plasma cell myeloma [Unknown]
  - Carcinoid tumour [Unknown]
